FAERS Safety Report 21011700 (Version 13)
Quarter: 2025Q3

REPORT INFORMATION
  Report Type: Report from Study
  Country: MX (occurrence: MX)
  Receive Date: 20220627
  Receipt Date: 20250918
  Transmission Date: 20251020
  Serious: Yes (Death, Hospitalization, Disabling, Other)
  Sender: NOVARTIS
  Company Number: MX-NOVARTISPH-NVSC2022MX120178

PATIENT
  Sex: Male
  Weight: 60 kg

DRUGS (13)
  1. TASIGNA [Suspect]
     Active Substance: NILOTINIB
     Indication: Chronic myeloid leukaemia
     Dosage: 2 DOSAGE FORM, Q12H
     Route: 048
  2. TASIGNA [Suspect]
     Active Substance: NILOTINIB
     Route: 048
  3. TASIGNA [Suspect]
     Active Substance: NILOTINIB
     Dosage: 2 DOSAGE FORM, QD, DAILY IN THE MORNING  AND 1 TABLET OF 200 MG IN THE EVENING
     Route: 048
  4. TASIGNA [Suspect]
     Active Substance: NILOTINIB
     Dosage: 2 DOSAGE FORM, Q12H (IN THE MORNING/ AT NIGHT) (2 OF 200MG)
     Route: 048
     Dates: start: 201610, end: 202206
  5. TASIGNA [Suspect]
     Active Substance: NILOTINIB
     Dosage: 2 DOSAGE FORM, Q12H (IN THE MORNING/ AT NIGHT) (2 OF 200MG)
     Route: 048
     Dates: start: 202207, end: 20250605
  6. TASIGNA [Suspect]
     Active Substance: NILOTINIB
     Dosage: 4 DOSAGE FORM, Q24H (4 OF 200MG)
     Route: 048
     Dates: end: 20250615
  7. METFORMIN [Concomitant]
     Active Substance: METFORMIN HYDROCHLORIDE
     Indication: Diabetes mellitus
     Dosage: 1 DOSAGE FORM, QD (1 OF 850 MG)
     Route: 048
     Dates: start: 2014, end: 202406
  8. TRADJENTA [Concomitant]
     Active Substance: LINAGLIPTIN
     Indication: Diabetes mellitus
     Dosage: 1 DOSAGE FORM TABLET, QD (IN THE MORNING) (5 MG)
     Route: 048
     Dates: start: 202406, end: 202505
  9. INSULIN NOS [Concomitant]
     Active Substance: INSULIN NOS
     Indication: Diabetes mellitus
     Route: 058
     Dates: start: 2014, end: 202506
  10. INSULIN NOS [Concomitant]
     Active Substance: INSULIN NOS
     Dosage: 25 UNITS AND AT NIGHT 15 UNITS, BID (AT MORNING AND AT NIGHT)
     Route: 058
     Dates: start: 2016
  11. HUMALOG MIX75/25 [Concomitant]
     Active Substance: INSULIN LISPRO
     Indication: Diabetes mellitus
     Route: 058
     Dates: start: 2016
  12. DAPAGLIFLOZIN [Concomitant]
     Active Substance: DAPAGLIFLOZIN
     Indication: Diabetes mellitus
     Dosage: 1 DOSAGE FORM, QD (1 TABLET IN THE MORNING)
     Route: 065
  13. DAPAGLIFLOZIN [Concomitant]
     Active Substance: DAPAGLIFLOZIN
     Dosage: 1 DOSAGE FORM, QD (1 OF 10 MG), TAB
     Route: 048
     Dates: start: 202505

REACTIONS (38)
  - Pneumonia [Fatal]
  - Septic shock [Fatal]
  - Pyrexia [Fatal]
  - Dyspnoea [Fatal]
  - Cardiovascular disorder [Not Recovered/Not Resolved]
  - Gangrene [Unknown]
  - Arterial occlusive disease [Recovered/Resolved with Sequelae]
  - Pain [Recovered/Resolved]
  - Pain [Recovering/Resolving]
  - Dyspnoea [Not Recovered/Not Resolved]
  - Pyrexia [Recovered/Resolved]
  - Malaise [Unknown]
  - Skin burning sensation [Recovered/Resolved]
  - Sensitive skin [Recovered/Resolved]
  - Blister [Recovered/Resolved]
  - Pain [Recovered/Resolved]
  - Hypoaesthesia [Unknown]
  - Radiculopathy [Unknown]
  - Infarction [Recovered/Resolved with Sequelae]
  - Arteriosclerosis [Recovered/Resolved]
  - Herpes virus infection [Recovered/Resolved]
  - Herpes virus infection [Recovered/Resolved]
  - Neuralgia [Recovered/Resolved]
  - Cardiac failure [Unknown]
  - Peripheral arterial occlusive disease [Not Recovered/Not Resolved]
  - Colitis [Recovered/Resolved]
  - Herpes virus infection [Recovered/Resolved with Sequelae]
  - Rash macular [Recovered/Resolved with Sequelae]
  - Limb discomfort [Recovered/Resolved with Sequelae]
  - Limb injury [Unknown]
  - Gait inability [Not Recovered/Not Resolved]
  - Pain in extremity [Recovered/Resolved with Sequelae]
  - Gastrointestinal inflammation [Recovered/Resolved]
  - Skin discolouration [Recovered/Resolved with Sequelae]
  - Fatigue [Unknown]
  - Arterial occlusive disease [Recovered/Resolved]
  - Pain in extremity [Recovered/Resolved with Sequelae]
  - Chest pain [Recovered/Resolved]

NARRATIVE: CASE EVENT DATE: 20210101
